FAERS Safety Report 17638653 (Version 1)
Quarter: 2020Q2

REPORT INFORMATION
  Report Type: Spontaneous
  Country: US (occurrence: US)
  Receive Date: 20200407
  Receipt Date: 20200407
  Transmission Date: 20200713
  Serious: Yes (Other)
  Sender: FDA-Public Use
  Company Number: US-AMNEAL PHARMACEUTICALS-2020-AMRX-01057

PATIENT
  Age: 40 Year
  Sex: Female

DRUGS (1)
  1. NORETHINDRONE ACETATE. [Suspect]
     Active Substance: NORETHINDRONE ACETATE
     Indication: ORAL CONTRACEPTION
     Dosage: 0.35 MILLIGRAM, DAILY
     Route: 048

REACTIONS (2)
  - Coronary artery dissection [Unknown]
  - Acute myocardial infarction [Unknown]
